FAERS Safety Report 21033435 (Version 1)
Quarter: 2022Q3

REPORT INFORMATION
  Report Type: Report from Study
  Country: US (occurrence: US)
  Receive Date: 20220701
  Receipt Date: 20220701
  Transmission Date: 20221027
  Serious: Yes (Other)
  Sender: FDA-Public Use
  Company Number: US-GILEAD-2022-0587372

PATIENT
  Age: 20 Year
  Sex: Female

DRUGS (12)
  1. AZTREONAM LYSINE [Suspect]
     Active Substance: AZTREONAM LYSINE
     Indication: Cystic fibrosis lung
     Dosage: 75 MG, TID,  USE FOR 28 DAYS ON THERAPY, 28 DAYS OFF, THEN REPEAT
     Route: 055
  2. FLUTICASONE [Concomitant]
     Active Substance: FLUTICASONE
  3. TRIKAFTA [Concomitant]
     Active Substance: ELEXACAFTOR\IVACAFTOR\TEZACAFTOR
  4. CYMBALTA [Concomitant]
     Active Substance: DULOXETINE HYDROCHLORIDE
  5. LANSOPRAZOLE [Concomitant]
     Active Substance: LANSOPRAZOLE
  6. ZENPEP [Concomitant]
     Active Substance: PANCRELIPASE AMYLASE\PANCRELIPASE LIPASE\PANCRELIPASE PROTEASE
  7. ALBUTEROL SULFATE [Concomitant]
     Active Substance: ALBUTEROL SULFATE
  8. ZINC [Concomitant]
     Active Substance: ZINC
  9. VITAMIN D3 [Concomitant]
     Active Substance: CHOLECALCIFEROL
  10. AZITHROMYCIN [Concomitant]
     Active Substance: AZITHROMYCIN
  11. PULMOZYME [Concomitant]
     Active Substance: DORNASE ALFA
  12. VITAMINS NOS [Concomitant]
     Active Substance: VITAMINS

REACTIONS (2)
  - Cystic fibrosis [Unknown]
  - Sinus disorder [Not Recovered/Not Resolved]
